FAERS Safety Report 5454400-1 (Version None)
Quarter: 2007Q3

REPORT INFORMATION
  Report Type: 
  Country: None (occurrence: None)
  Receive Date: 20070917
  Receipt Date: 20060731
  Transmission Date: 20080115
  Serious: No
  Sender: FDA-Public Use
  Company Number: US-ASTRAZENECA-2006UW15317

PATIENT
  Sex: Female

DRUGS (7)
  1. SEROQUEL [Suspect]
     Route: 048
     Dates: start: 20060501
  2. RAZADYNE [Concomitant]
  3. LEVOTHYROXINE SODIUM [Concomitant]
  4. MULTI-VITAMIN [Concomitant]
  5. PAXIL [Concomitant]
  6. BUSPAR [Concomitant]
  7. IMURAN [Concomitant]

REACTIONS (7)
  - AGITATION [None]
  - BRONCHITIS [None]
  - COUGH [None]
  - DIZZINESS [None]
  - DYSKINESIA [None]
  - SLEEP TERROR [None]
  - TREMOR [None]
